FAERS Safety Report 20369113 (Version 2)
Quarter: 2022Q1

REPORT INFORMATION
  Report Type: Report from Study
  Country: PL (occurrence: None)
  Receive Date: 20220124
  Receipt Date: 20220218
  Transmission Date: 20220423
  Serious: Yes (Hospitalization)
  Sender: FDA-Public Use
  Company Number: PL-ROCHE-2992754

PATIENT
  Age: 24 Year
  Sex: Female
  Weight: 56 kg

DRUGS (25)
  1. OCRELIZUMAB [Suspect]
     Active Substance: OCRELIZUMAB
     Indication: Relapsing-remitting multiple sclerosis
     Dosage: 300 MG ON DAYS 1 AND 15, FOLLOWED BY 600MG ONCE IN 24 WEEKS?DATE OF MOST RECENT DOSE OF OCRELIZUMAB
     Route: 042
     Dates: start: 20181207
  2. METHYLPREDNISOLONE [Suspect]
     Active Substance: METHYLPREDNISOLONE
     Indication: Premedication
     Dosage: ONCE BEFORE INFUSION?SUBSEQUENT DOSE:21/DEC/2018, 22/MAY/2019, 14/NOV/2019, 22/APR/2020, 26/OCT/2020
     Route: 042
     Dates: start: 20181207, end: 20181207
  3. PFIZER-BIONTECH COVID-19 VACCINE [Concomitant]
     Active Substance: TOZINAMERAN
     Dosage: SECOND DOSE: 17/FEB/2021
     Dates: start: 20210117
  4. ATUSSAN [Concomitant]
     Route: 048
     Dates: start: 20200301, end: 20200306
  5. BIORACEF [Concomitant]
     Route: 048
     Dates: start: 20200301, end: 20200301
  6. BIORACEF [Concomitant]
     Route: 048
     Dates: start: 20200302, end: 20200305
  7. BIORACEF [Concomitant]
     Route: 048
     Dates: start: 20200306, end: 20200306
  8. BIOTEBAL [Concomitant]
     Route: 048
     Dates: start: 20181222
  9. COMIRNATY [Concomitant]
     Active Substance: TOZINAMERAN
     Route: 030
     Dates: start: 20210117, end: 20210117
  10. COMIRNATY [Concomitant]
     Active Substance: TOZINAMERAN
     Route: 030
     Dates: start: 20210217, end: 20210217
  11. DEXAPINI [Concomitant]
     Route: 048
     Dates: start: 20200228, end: 20200229
  12. AMOXICILLIN TRIHYDRATE [Concomitant]
     Active Substance: AMOXICILLIN
     Route: 048
     Dates: start: 20210518, end: 20211127
  13. HEDELIX [Concomitant]
     Dosage: NEXT DOSE:17/MAY/2021
     Route: 048
     Dates: start: 20210217, end: 20210221
  14. HEDERASAL [Concomitant]
     Route: 048
     Dates: start: 20200802, end: 20200813
  15. IBUM [Concomitant]
     Route: 048
     Dates: start: 20190212, end: 20190214
  16. IBUM [Concomitant]
     Dosage: NEXT DOSE: 11/SEP/2020, 11/OCT/2020, 09/OCT/2020, 17/FEB/2021, 18/MAR/2021, 03/SEP/2021, 23/NOV/2021
     Route: 048
     Dates: start: 20200818, end: 20200818
  17. IBUM FORTE [Concomitant]
     Dosage: NEXT DOSE: 20/AUG/2019, 12/OCT/2019, 26/AUG/2019, 20/NOV/2019, 17/JAN/2020, 26/FEB/2020, 12/JUL/2021
     Route: 048
     Dates: start: 20190811, end: 20190811
  18. INOVOX EXPRESS [Concomitant]
     Route: 048
     Dates: start: 20210517, end: 20210525
  19. ISLA [Concomitant]
     Route: 048
     Dates: start: 20200802, end: 20200814
  20. AMOXICILLIN [Concomitant]
     Active Substance: AMOXICILLIN
     Route: 048
     Dates: start: 20201009, end: 20201011
  21. STREPSILS INTENSIVE [Concomitant]
     Route: 048
     Dates: start: 20210217
  22. BENZYDAMINE HYDROCHLORIDE [Concomitant]
     Active Substance: BENZYDAMINE HYDROCHLORIDE
     Dosage: NEXT DOSE: 09/OCT/2020, 17/FEB/2021, 11/MAY/2021
     Dates: start: 20190212, end: 20190214
  23. UNIBEN (POLAND) [Concomitant]
     Dates: start: 20200228, end: 20200306
  24. VITAMIN C [Concomitant]
     Active Substance: ASCORBIC ACID
     Route: 048
     Dates: start: 20190212, end: 20190214
  25. APAP NOC [Concomitant]
     Dosage: SUBSEQUENT DOSE:21/DEC/2018, 22/MAY/2019, 14/NOV/2019, 22/APR/2020, 26/OCT/2020, 12/APR/2021, 15/SEP
     Route: 048
     Dates: start: 20181207, end: 20181207

REACTIONS (1)
  - COVID-19 [Not Recovered/Not Resolved]

NARRATIVE: CASE EVENT DATE: 20211129
